FAERS Safety Report 18935935 (Version 2)
Quarter: 2021Q1

REPORT INFORMATION
  Report Type: Spontaneous
  Country: CO (occurrence: CO)
  Receive Date: 20210225
  Receipt Date: 20210330
  Transmission Date: 20210420
  Serious: Yes (Hospitalization)
  Sender: FDA-Public Use
  Company Number: CO-EMD SERONO-9220241

PATIENT
  Age: 62 Year
  Sex: Female
  Weight: 60 kg

DRUGS (7)
  1. ENALAPRIL [Concomitant]
     Active Substance: ENALAPRIL
     Indication: PRODUCT USED FOR UNKNOWN INDICATION
  2. JAKAVI [Suspect]
     Active Substance: RUXOLITINIB
     Indication: PRIMARY MYELOFIBROSIS
     Route: 048
  3. JAKAVI [Suspect]
     Active Substance: RUXOLITINIB
     Dosage: RE?INTRODUCED
     Route: 048
     Dates: start: 2021
  4. METFORMIN [Suspect]
     Active Substance: METFORMIN HYDROCHLORIDE
     Indication: DIABETES MELLITUS
  5. JAKAVI [Suspect]
     Active Substance: RUXOLITINIB
     Route: 048
     Dates: start: 20170518
  6. JAKAVI [Suspect]
     Active Substance: RUXOLITINIB
     Route: 048
     Dates: end: 202012
  7. FERROUS SULFATE. [Concomitant]
     Active Substance: FERROUS SULFATE
     Indication: PRODUCT USED FOR UNKNOWN INDICATION

REACTIONS (6)
  - Haematemesis [Recovered/Resolved]
  - Haematochezia [Recovered/Resolved]
  - Headache [Recovered/Resolved]
  - Ulcer [Unknown]
  - Haemoglobin decreased [Recovering/Resolving]
  - Illness [Unknown]

NARRATIVE: CASE EVENT DATE: 20170703
